FAERS Safety Report 7780446-4 (Version None)
Quarter: 2011Q3

REPORT INFORMATION
  Report Type: 
  Country: None (occurrence: None)
  Receive Date: 20110923
  Receipt Date: 20110909
  Transmission Date: 20111222
  Serious: Yes (Other)
  Sender: FDA-Public Use
  Company Number: TPA2011A05673

PATIENT
  Age: 70 Year
  Sex: Male
  Weight: 99.7913 kg

DRUGS (7)
  1. DILTIAZEM [Concomitant]
  2. METOPROLOL TARTRATE [Concomitant]
  3. LIPITOR [Concomitant]
  4. PRADAXA (DABIGTRAN) [Concomitant]
  5. LOSARATAN (LOSARTAN) [Concomitant]
  6. ASPIRIN [Concomitant]
  7. ACTOS [Suspect]
     Dosage: 15 MG, 1 IN 1 D, PER ORAL
     Route: 048
     Dates: start: 20041101

REACTIONS (1)
  - BLADDER CANCER [None]
